FAERS Safety Report 15904458 (Version 3)
Quarter: 2019Q1

REPORT INFORMATION
  Report Type: Report from Study
  Country: ES (occurrence: ES)
  Receive Date: 20190204
  Receipt Date: 20190322
  Transmission Date: 20190417
  Serious: Yes (Other)
  Sender: FDA-Public Use
  Company Number: ES-ACCORD-105344

PATIENT
  Age: 70 Year
  Sex: Female

DRUGS (5)
  1. SEVIKAR [Concomitant]
     Active Substance: AMLODIPINE BESYLATE\OLMESARTAN MEDOXOMIL
     Dosage: 1-0-0?STRENGTH : 20 MG/5 MG?28
     Route: 048
     Dates: start: 20160804
  2. IRINOTECAN [Suspect]
     Active Substance: IRINOTECAN
     Indication: COLORECTAL CANCER RECURRENT
     Dosage: 275 MG (CYCLE 14) ON 05/11
     Route: 042
     Dates: start: 20160804, end: 20170511
  3. AFLIBERCEPT [Suspect]
     Active Substance: AFLIBERCEPT
     Indication: COLORECTAL CANCER RECURRENT
     Dosage: 336 MG, 14 CYCLES
     Route: 042
     Dates: start: 20160804, end: 20170511
  4. NEURONTIN [Concomitant]
     Active Substance: GABAPENTIN
     Dosage: 1-0-1?STRENGTH : 800 MG?500 TABLETS
     Route: 048
     Dates: start: 20160804
  5. DUROGESIC MATRIX [Concomitant]
     Active Substance: FENTANYL
     Dosage: C/72 H?50 MICROGRAMS / H?5 PATCHES
     Route: 062
     Dates: start: 20160804

REACTIONS (1)
  - Hepatitis [Recovered/Resolved]

NARRATIVE: CASE EVENT DATE: 20170709
